FAERS Safety Report 25655151 (Version 1)
Quarter: 2025Q3

REPORT INFORMATION
  Report Type: Spontaneous
  Country: CN (occurrence: CN)
  Receive Date: 20250807
  Receipt Date: 20250807
  Transmission Date: 20251021
  Serious: Yes (Other)
  Sender: PFIZER
  Company Number: CN-PFIZER INC-PV202500094420

PATIENT
  Age: 12 Year
  Sex: Male

DRUGS (1)
  1. XYNTHA [Suspect]
     Active Substance: MOROCTOCOG ALFA
     Indication: Haemorrhage
     Dosage: 1500 IU, 2X/DAY
     Route: 042

REACTIONS (6)
  - Nephrolithiasis [Unknown]
  - Haematuria [Recovered/Resolved]
  - Bone pain [Unknown]
  - Joint swelling [Unknown]
  - Arthralgia [Unknown]
  - Back pain [Recovered/Resolved]

NARRATIVE: CASE EVENT DATE: 20240213
